FAERS Safety Report 6642364-4 (Version None)
Quarter: 2010Q1

REPORT INFORMATION
  Report Type: 
  Country: None (occurrence: None)
  Receive Date: 20100319
  Receipt Date: 20100311
  Transmission Date: 20100710
  Serious: Yes (Hospitalization, Other)
  Sender: FDA-Public Use
  Company Number: JP-ROCHE-686814

PATIENT
  Sex: Female
  Weight: 63 kg

DRUGS (11)
  1. AVASTIN [Suspect]
     Indication: COLON CANCER METASTATIC
     Route: 041
     Dates: start: 20100126, end: 20100126
  2. ELPLAT [Concomitant]
     Indication: COLON CANCER
     Route: 041
     Dates: start: 20091013, end: 20100114
  3. ELPLAT [Concomitant]
     Route: 041
     Dates: start: 20100126, end: 20100126
  4. FLUOROURACIL [Concomitant]
     Indication: COLON CANCER
     Dosage: ROUTE: INTRAVENOUS BOLUS
     Route: 041
     Dates: start: 20091013, end: 20100114
  5. FLUOROURACIL [Concomitant]
     Dosage: INTRAVENOUS DRIP
     Route: 041
     Dates: start: 20091013, end: 20100114
  6. FLUOROURACIL [Concomitant]
     Dosage: INTRAVENOUS BOLUS
     Route: 041
     Dates: start: 20100126, end: 20100127
  7. FLUOROURACIL [Concomitant]
     Dosage: INTRAVENOUS DRIP
     Route: 041
     Dates: start: 20100126, end: 20100128
  8. ISOVORIN [Concomitant]
     Dosage: INTRAVENOUS DRIP
     Route: 041
     Dates: start: 20091013, end: 20100114
  9. ISOVORIN [Concomitant]
     Route: 041
     Dates: start: 20100126, end: 20100127
  10. DECADRON [Concomitant]
     Route: 042
     Dates: start: 20100126, end: 20100127
  11. KYTRIL [Concomitant]
     Route: 042
     Dates: start: 20100126, end: 20100127

REACTIONS (2)
  - ABDOMINAL ABSCESS [None]
  - ILEUS [None]
